FAERS Safety Report 25627557 (Version 1)
Quarter: 2025Q3

REPORT INFORMATION
  Report Type: Spontaneous
  Country: CL (occurrence: CL)
  Receive Date: 20250731
  Receipt Date: 20250731
  Transmission Date: 20251021
  Serious: Yes (Death)
  Sender: PFIZER
  Company Number: CL-PFIZER INC-PV202500092086

PATIENT
  Age: 64 Year
  Sex: Female

DRUGS (2)
  1. BRAFTOVI [Suspect]
     Active Substance: ENCORAFENIB
  2. MEKTOVI [Suspect]
     Active Substance: BINIMETINIB

REACTIONS (1)
  - Death [Fatal]
